FAERS Safety Report 6726459-2 (Version None)
Quarter: 2010Q2

REPORT INFORMATION
  Report Type: 
  Country: None (occurrence: None)
  Receive Date: 20100514
  Receipt Date: 20100507
  Transmission Date: 20101027
  Serious: Yes (Hospitalization)
  Sender: FDA-Public Use
  Company Number: PHHO2010FR06987

PATIENT
  Sex: Male
  Weight: 66 kg

DRUGS (5)
  1. MYCOPHENOLIC ACID [Suspect]
     Indication: RENAL TRANSPLANT
     Dosage: 2880MG, DAILY
     Route: 048
     Dates: start: 20091225
  2. NEORAL [Suspect]
     Indication: RENAL TRANSPLANT
     Dosage: 150, DAILY
     Dates: start: 20091225
  3. CORTANCYL [Concomitant]
     Indication: RENAL TRANSPLANT
     Dosage: 10MG, DAILY
     Route: 048
     Dates: start: 20091225
  4. BACTRIM [Concomitant]
     Indication: PROPHYLAXIS
  5. TAHOR [Concomitant]

REACTIONS (6)
  - DEHYDRATION [None]
  - DIARRHOEA [None]
  - DYSURIA [None]
  - POLLAKIURIA [None]
  - RENAL FAILURE ACUTE [None]
  - WEIGHT DECREASED [None]
